FAERS Safety Report 24310019 (Version 2)
Quarter: 2024Q4

REPORT INFORMATION
  Report Type: Spontaneous
  Country: US (occurrence: US)
  Receive Date: 20240912
  Receipt Date: 20241016
  Transmission Date: 20250114
  Serious: No
  Sender: JOHNSON AND JOHNSON
  Company Number: US-JNJFOC-20240877556

PATIENT
  Age: 60 Year
  Sex: Female
  Weight: 53.1 kg

DRUGS (2)
  1. REMICADE [Suspect]
     Active Substance: INFLIXIMAB
     Indication: Psoriatic arthropathy
     Dosage: THEY USE 3 100 MG VIALS TO MAKE 270 MG DOSE AND WASTE 30 MG
     Route: 041
     Dates: start: 20240805
  2. REMICADE [Suspect]
     Active Substance: INFLIXIMAB
     Dosage: THEY USE 3 100 MG VIALS TO MAKE 270 MG DOSE AND WASTE 30 MG
     Route: 041
     Dates: start: 20240820

REACTIONS (3)
  - Illness [Unknown]
  - Therapy cessation [Unknown]
  - Off label use [Unknown]

NARRATIVE: CASE EVENT DATE: 20240819
